FAERS Safety Report 11771645 (Version 1)
Quarter: 2015Q4

REPORT INFORMATION
  Report Type: Spontaneous
  Country: US (occurrence: None)
  Receive Date: 20151123
  Receipt Date: 20151123
  Transmission Date: 20160304
  Serious: Yes (Other)
  Sender: FDA-Public Use
  Company Number: None

PATIENT
  Age: 42 Year
  Sex: Male
  Weight: 69.4 kg

DRUGS (5)
  1. PROPRANALOL [Concomitant]
  2. BUPRENORPHINE. [Suspect]
     Active Substance: BUPRENORPHINE
  3. KRATOM [Suspect]
     Active Substance: HERBALS
     Indication: PRODUCT USED FOR UNKNOWN INDICATION
     Route: 048
  4. GABAPENTIN. [Concomitant]
     Active Substance: GABAPENTIN
  5. HYDROCODNE [Concomitant]

REACTIONS (2)
  - Wrong drug administered [None]
  - Drug screen negative [None]

NARRATIVE: CASE EVENT DATE: 20151026
